FAERS Safety Report 6434890-8 (Version None)
Quarter: 2009Q4

REPORT INFORMATION
  Report Type: 
  Country: None (occurrence: None)
  Receive Date: 20091110
  Receipt Date: 20090716
  Transmission Date: 20100525
  Serious: Yes (Hospitalization)
  Sender: FDA-Public Use
  Company Number: FR-PFIZER INC-2009265950

PATIENT
  Age: 66 Year
  Sex: Male

DRUGS (5)
  1. EPIRUBICIN HCL [Suspect]
     Indication: GASTRIC CANCER
  2. CISPLATIN [Suspect]
     Indication: GASTRIC CANCER
  3. CAPECITABINE [Suspect]
     Indication: GASTRIC CANCER
  4. IOMEPROL [Suspect]
  5. INIPOMP [Concomitant]
     Indication: GASTRIC CANCER
     Dosage: 40 MG, UNK
     Route: 048
     Dates: start: 20071101, end: 20080915

REACTIONS (1)
  - RENAL FAILURE ACUTE [None]
